FAERS Safety Report 17609155 (Version 2)
Quarter: 2020Q3

REPORT INFORMATION
  Report Type: Spontaneous
  Country: US (occurrence: US)
  Receive Date: 20200401
  Receipt Date: 20200708
  Transmission Date: 20201102
  Serious: Yes (Other)
  Sender: FDA-Public Use
  Company Number: US-SA-2020SA078544

PATIENT

DRUGS (11)
  1. LOSARTAN POTASSIUM. [Suspect]
     Active Substance: LOSARTAN POTASSIUM
  2. ALIROCUMAB [Suspect]
     Active Substance: ALIROCUMAB
     Indication: HYPERLIPIDAEMIA
  3. OMEPRAZOLE. [Concomitant]
     Active Substance: OMEPRAZOLE
  4. APIXABAN [Concomitant]
     Active Substance: APIXABAN
  5. DILTIAZEM. [Concomitant]
     Active Substance: DILTIAZEM
  6. GABAPENTIN. [Concomitant]
     Active Substance: GABAPENTIN
  7. ALIROCUMAB [Suspect]
     Active Substance: ALIROCUMAB
     Indication: CORONARY ARTERY DISEASE
     Dosage: 150 MG, QOW
  8. ALIROCUMAB [Suspect]
     Active Substance: ALIROCUMAB
     Indication: DRUG INTOLERANCE
  9. ASPIRIN [ACETYLSALICYLIC ACID] [Concomitant]
     Active Substance: ASPIRIN
  10. EZETIMIBE. [Concomitant]
     Active Substance: EZETIMIBE
     Indication: TYPE IIA HYPERLIPIDAEMIA
  11. FUROSEMIDE. [Concomitant]
     Active Substance: FUROSEMIDE

REACTIONS (6)
  - Acute kidney injury [Recovering/Resolving]
  - Haematuria [Recovering/Resolving]
  - Proteinuria [Recovering/Resolving]
  - Renal tubular necrosis [Recovering/Resolving]
  - Pyuria [Recovering/Resolving]
  - Hyperuricaemia [Recovering/Resolving]
